FAERS Safety Report 11631522 (Version 2)
Quarter: 2015Q4

REPORT INFORMATION
  Report Type: Spontaneous
  Country: US (occurrence: US)
  Receive Date: 20151015
  Receipt Date: 20151112
  Transmission Date: 20160304
  Serious: No
  Sender: FDA-Public Use
  Company Number: US-BAYER-2015-437932

PATIENT
  Age: 78 Year
  Sex: Male
  Weight: 99.77 kg

DRUGS (2)
  1. MIRALAX [Suspect]
     Active Substance: POLYETHYLENE GLYCOL 3350
     Indication: CONSTIPATION
     Dosage: 1 DF, PRN
     Route: 048
  2. WARFARIN [Concomitant]
     Active Substance: WARFARIN

REACTIONS (5)
  - Flatulence [Recovered/Resolved]
  - Product use issue [None]
  - Circumstance or information capable of leading to medication error [None]
  - Wrong technique in product usage process [None]
  - Expired product administered [None]

NARRATIVE: CASE EVENT DATE: 20151001
